FAERS Safety Report 18120226 (Version 1)
Quarter: 2020Q3

REPORT INFORMATION
  Report Type: Spontaneous
  Country: US (occurrence: US)
  Receive Date: 20200806
  Receipt Date: 20200806
  Transmission Date: 20201103
  Serious: No
  Sender: FDA-Public Use
  Company Number: US-TARO-2020TAR00194

PATIENT

DRUGS (1)
  1. KETOCONAZOLE TABLETS USP 200 MG [Suspect]
     Active Substance: KETOCONAZOLE
     Indication: FUNGAL INFECTION
     Dosage: 200 MG, DURATION: 6 WEEKS OR 2 MONTHS
     Route: 065

REACTIONS (1)
  - Drug ineffective [Unknown]
